FAERS Safety Report 10024295 (Version 2)
Quarter: 2014Q2

REPORT INFORMATION
  Report Type: Spontaneous
  Country: US (occurrence: US)
  Receive Date: 20140320
  Receipt Date: 20140523
  Transmission Date: 20141212
  Serious: Yes (Death)
  Sender: FDA-Public Use
  Company Number: US-PFIZER INC-2014080066

PATIENT
  Age: 42 Year
  Sex: Female

DRUGS (5)
  1. LYRICA [Suspect]
     Dosage: 100 MG, 1X/DAY
  2. ADVAIR [Concomitant]
     Dosage: UNK
  3. CYMBALTA [Concomitant]
     Dosage: UNK
  4. HUMALOG [Concomitant]
     Dosage: UNK
  5. LANTUS [Concomitant]
     Dosage: UNK

REACTIONS (1)
  - Death [Fatal]
